FAERS Safety Report 10617604 (Version 4)
Quarter: 2015Q3

REPORT INFORMATION
  Report Type: Report from Study
  Country: US (occurrence: US)
  Receive Date: 20141201
  Receipt Date: 20150904
  Transmission Date: 20151125
  Serious: Yes (Other)
  Sender: FDA-Public Use
  Company Number: US-SA-2014SA114268

PATIENT
  Age: 49 Year
  Sex: Male
  Weight: 193 kg

DRUGS (1)
  1. AUBAGIO [Suspect]
     Active Substance: TERIFLUNOMIDE
     Indication: MULTIPLE SCLEROSIS
     Route: 048
     Dates: start: 20140804

REACTIONS (10)
  - Road traffic accident [Unknown]
  - Gait disturbance [Unknown]
  - Multiple sclerosis [Unknown]
  - Muscular weakness [Unknown]
  - Alopecia [Unknown]
  - Muscle spasms [Unknown]
  - Peroneal nerve palsy [Unknown]
  - Urinary retention [Unknown]
  - Rotator cuff syndrome [Unknown]
  - Pain [Recovered/Resolved]

NARRATIVE: CASE EVENT DATE: 201408
